FAERS Safety Report 8192057-X (Version None)
Quarter: 2012Q1

REPORT INFORMATION
  Report Type: 
  Country: None (occurrence: None)
  Receive Date: 20120307
  Receipt Date: 20120306
  Transmission Date: 20120608
  Serious: Yes (Death, Other)
  Sender: FDA-Public Use
  Company Number: PHFR2012GB001561

PATIENT
  Sex: Female

DRUGS (1)
  1. CLOZARIL [Suspect]
     Indication: SCHIZOPHRENIA
     Dates: start: 19960517

REACTIONS (5)
  - MUSCULOSKELETAL PAIN [None]
  - DEATH [None]
  - HEAD AND NECK CANCER [None]
  - MALAISE [None]
  - ASTHMA [None]
